FAERS Safety Report 4904480-4 (Version None)
Quarter: 2006Q1

REPORT INFORMATION
  Report Type: 
  Country: None (occurrence: None)
  Receive Date: 20060208
  Receipt Date: 20050909
  Transmission Date: 20060701
  Serious: No
  Sender: FDA-Public Use
  Company Number: US-GLAXOSMITHKLINE-A0573589A

PATIENT
  Age: 83 Year
  Sex: Female

DRUGS (3)
  1. PAXIL [Suspect]
     Indication: DRUG USE FOR UNKNOWN INDICATION
     Dosage: 40MG PER DAY
     Route: 048
  2. MECLIZINE [Concomitant]
  3. MAGNOLAX [Concomitant]

REACTIONS (3)
  - DIZZINESS [None]
  - MEDICATION ERROR [None]
  - VOMITING [None]
